FAERS Safety Report 8956767 (Version 1)
Quarter: 2012Q4

REPORT INFORMATION
  Report Type: 
  Country: US (occurrence: None)
  Receive Date: 20121130
  Receipt Date: 20121130
  Transmission Date: 20130627
  Serious: Yes (Hospitalization)
  Sender: FDA-Public Use
  Company Number: ALLO20120020

PATIENT
  Age: 58 Year
  Sex: Male

DRUGS (1)
  1. ALLOPURINOL [Suspect]
     Indication: GOUT
     Route: 048
     Dates: start: 2012, end: 201210

REACTIONS (3)
  - Pancreatitis [None]
  - Hepatitis [None]
  - Drug reaction with eosinophilia and systemic symptoms [None]
